FAERS Safety Report 9005677 (Version 1)
Quarter: 2013Q1

REPORT INFORMATION
  Report Type: Spontaneous
  Country: US (occurrence: US)
  Receive Date: 20130109
  Receipt Date: 20130109
  Transmission Date: 20140127
  Serious: No
  Sender: FDA-Public Use
  Company Number: US-ABBOTT-12P-163-0988269-00

PATIENT
  Sex: Male
  Weight: 103.51 kg

DRUGS (11)
  1. VICODIN [Suspect]
     Indication: PAIN
     Route: 048
  2. VICODIN [Suspect]
     Indication: NERVE INJURY
  3. VALIUM [Concomitant]
     Indication: NERVE INJURY
     Route: 048
  4. VALIUM [Concomitant]
     Indication: PAIN
  5. ZETIA [Concomitant]
     Indication: BLOOD CHOLESTEROL
     Route: 048
  6. ACYCLOVIR [Concomitant]
     Indication: PRODUCT USED FOR UNKNOWN INDICATION
     Route: 048
  7. AMBIEN [Concomitant]
     Indication: PRODUCT USED FOR UNKNOWN INDICATION
     Route: 048
  8. DICYCLOMINE [Concomitant]
     Indication: ABDOMINAL DISCOMFORT
     Route: 048
  9. SOMA [Concomitant]
     Indication: PAIN
     Route: 048
  10. AZELIATINE [Concomitant]
     Indication: HYPERSENSITIVITY
     Route: 048
  11. TRICOR [Concomitant]
     Indication: PRODUCT USED FOR UNKNOWN INDICATION

REACTIONS (1)
  - Somnolence [Unknown]
